FAERS Safety Report 8876235 (Version 1)
Quarter: 2012Q4

REPORT INFORMATION
  Report Type: 
  Country: US (occurrence: US)
  Receive Date: 20121030
  Receipt Date: 20121030
  Transmission Date: 20130627
  Serious: Yes (Death, Hospitalization)
  Sender: FDA-Public Use
  Company Number: US-ARROW-2012-18388

PATIENT
  Age: 15 Year
  Sex: Male

DRUGS (1)
  1. PREDNISONE (UNKNOWN) [Suspect]
     Indication: SINUSITIS
     Dosage: UNK
     Route: 065

REACTIONS (3)
  - Tumour lysis syndrome [Recovering/Resolving]
  - Renal failure [Recovering/Resolving]
  - VIIth nerve paralysis [Recovering/Resolving]
